FAERS Safety Report 11819865 (Version 1)
Quarter: 2015Q4

REPORT INFORMATION
  Report Type: Spontaneous
  Country: US (occurrence: None)
  Receive Date: 20151209
  Receipt Date: 20151209
  Transmission Date: 20160305
  Serious: No
  Sender: FDA-Public Use
  Company Number: None

PATIENT
  Age: 8 Year
  Sex: Female
  Weight: 22.23 kg

DRUGS (1)
  1. GENERIC FOCALIN XR 5MG (DEXMETHYLPHENIDATE) [Suspect]
     Active Substance: DEXMETHYLPHENIDATE HYDROCHLORIDE
     Indication: ATTENTION DEFICIT/HYPERACTIVITY DISORDER
     Route: 048

REACTIONS (5)
  - Nausea [None]
  - Abnormal behaviour [None]
  - Drug intolerance [None]
  - Product substitution issue [None]
  - Disturbance in attention [None]

NARRATIVE: CASE EVENT DATE: 20151119
